FAERS Safety Report 8690791 (Version 3)
Quarter: 2013Q4

REPORT INFORMATION
  Report Type: Spontaneous
  Country: US (occurrence: US)
  Receive Date: 20120728
  Receipt Date: 20131031
  Transmission Date: 20140711
  Serious: No
  Sender: FDA-Public Use
  Company Number: US-009507513-2012SP033692

PATIENT
  Sex: Female
  Weight: 58.5 kg

DRUGS (1)
  1. IMPLANON [Suspect]
     Indication: CONTRACEPTION
     Dosage: 1 DF, UNK
     Route: 059
     Dates: start: 200905

REACTIONS (2)
  - Incorrect drug administration duration [Not Recovered/Not Resolved]
  - Pain in extremity [Recovered/Resolved]
